FAERS Safety Report 24669690 (Version 1)
Quarter: 2024Q4

REPORT INFORMATION
  Report Type: Spontaneous
  Country: GB (occurrence: GB)
  Receive Date: 20241127
  Receipt Date: 20241127
  Transmission Date: 20250114
  Serious: Yes (Other)
  Sender: INCYTE
  Company Number: GB-EVENT-000638

PATIENT

DRUGS (2)
  1. PEMAZYRE [Suspect]
     Active Substance: PEMIGATINIB
     Dosage: UNK
     Route: 065
  2. PEMAZYRE [Suspect]
     Active Substance: PEMIGATINIB
     Dosage: 9 MILLIGRAM
     Route: 065

REACTIONS (10)
  - Pericardial effusion [Unknown]
  - Dysgeusia [Unknown]
  - Oropharyngeal pain [Unknown]
  - Onychalgia [Unknown]
  - Pleural effusion [Recovered/Resolved]
  - Pulmonary mass [Unknown]
  - Pulmonary hilum mass [Unknown]
  - Inguinal mass [Unknown]
  - Skin mass [Unknown]
  - Off label use [Unknown]
